FAERS Safety Report 6361389-X (Version None)
Quarter: 2009Q3

REPORT INFORMATION
  Report Type: 
  Country: None (occurrence: None)
  Receive Date: 20090918
  Receipt Date: 20090908
  Transmission Date: 20100115
  Serious: Yes (Other)
  Sender: FDA-Public Use
  Company Number: FR-ELI_LILLY_AND_COMPANY-FR200909001963

PATIENT
  Sex: Male

DRUGS (1)
  1. ZYPREXA [Suspect]
     Route: 048
     Dates: start: 20070101

REACTIONS (2)
  - PULMONARY EMBOLISM [None]
  - WEIGHT INCREASED [None]
